FAERS Safety Report 6262610-9 (Version None)
Quarter: 2009Q3

REPORT INFORMATION
  Report Type: 
  Country: None (occurrence: None)
  Receive Date: 20090709
  Receipt Date: 20090707
  Transmission Date: 20100115
  Serious: Yes (Other)
  Sender: FDA-Public Use
  Company Number: ES-WYE-G04000009

PATIENT
  Sex: Male

DRUGS (1)
  1. TORISEL [Suspect]
     Indication: RENAL CANCER
     Dosage: UNKNOWN
     Route: 042
     Dates: start: 20090612

REACTIONS (3)
  - HYPERSENSITIVITY [None]
  - THROAT IRRITATION [None]
  - URTICARIA [None]
